FAERS Safety Report 4515302-8 (Version None)
Quarter: 2004Q4

REPORT INFORMATION
  Report Type: 
  Country: None (occurrence: None)
  Receive Date: 20041126
  Receipt Date: 20041116
  Transmission Date: 20050328
  Serious: Yes (Death)
  Sender: FDA-Public Use
  Company Number: 2004-11-1093

PATIENT
  Sex: Male

DRUGS (2)
  1. GENTALYN INJECTABLE SOLUTION (GENTAMICIN SULFATE) [Suspect]
     Indication: MENINGITIS
  2. ANTIDIARRHEAL (NOS) [Concomitant]

REACTIONS (1)
  - DEATH [None]
